FAERS Safety Report 24835127 (Version 1)
Quarter: 2025Q1

REPORT INFORMATION
  Report Type: Spontaneous
  Country: US (occurrence: US)
  Receive Date: 20250113
  Receipt Date: 20250113
  Transmission Date: 20250409
  Serious: Yes (Other)
  Sender: EMCURE PHARMACEUTICALS LTD
  Company Number: US-AVET LIFESCIENCES LTD-2025-AVET-000003

PATIENT
  Age: 55 Year
  Sex: Female

DRUGS (11)
  1. BUSPIRONE [Suspect]
     Active Substance: BUSPIRONE HYDROCHLORIDE
     Indication: Product used for unknown indication
     Route: 065
  2. METOPROLOL SUCCINATE [Concomitant]
     Active Substance: METOPROLOL SUCCINATE
  3. LISINOPRIL [Concomitant]
     Active Substance: LISINOPRIL
  4. CLONIDINE [Concomitant]
     Active Substance: CLONIDINE
  5. ROSUVASTATIN [Concomitant]
     Active Substance: ROSUVASTATIN
  6. ROPINIROLE [Concomitant]
     Active Substance: ROPINIROLE
  7. PROGESTERONE [Concomitant]
     Active Substance: PROGESTERONE
  8. APREMILAST [Concomitant]
     Active Substance: APREMILAST
  9. DULOXETINE [Concomitant]
     Active Substance: DULOXETINE
  10. BUPROPION [Concomitant]
     Active Substance: BUPROPION
  11. RIZATRIPTAN [Concomitant]
     Active Substance: RIZATRIPTAN

REACTIONS (3)
  - Secondary hypertension [Recovering/Resolving]
  - Blood catecholamines increased [Recovering/Resolving]
  - Catecholamines urine increased [Recovering/Resolving]
